FAERS Safety Report 4508867-3 (Version None)
Quarter: 2004Q4

REPORT INFORMATION
  Report Type: 
  Country: None (occurrence: None)
  Receive Date: 20041123
  Receipt Date: 20041101
  Transmission Date: 20050328
  Serious: Yes (Death, Disabling, Other)
  Sender: FDA-Public Use
  Company Number: JP-BRISTOL-MYERS SQUIBB COMPANY-12761375

PATIENT
  Age: 77 Year
  Sex: Female

DRUGS (12)
  1. GATIFLO TABS [Suspect]
     Indication: URINARY TRACT INFECTION
     Route: 048
     Dates: start: 20041022, end: 20041028
  2. UNASYN [Concomitant]
     Dates: start: 20041029
  3. HYPERALIMENTATION [Concomitant]
     Route: 042
  4. MVI-12 (UNIT VIAL) [Concomitant]
     Dosage: FOR TOTAL PARENTERAL NUTRITION
  5. ASPARA-K [Concomitant]
  6. MINERALIN [Concomitant]
  7. LASIX [Concomitant]
     Dates: start: 20040926, end: 20041031
  8. LANIRAPID [Concomitant]
     Route: 048
     Dates: start: 20041016, end: 20041031
  9. FLORINEF [Concomitant]
     Dates: start: 20041016, end: 20041031
  10. DEPAKENE [Concomitant]
     Route: 048
     Dates: start: 20041016, end: 20041031
  11. PROMAC [Concomitant]
     Route: 048
     Dates: start: 20041016, end: 20041031
  12. UNICALIQ N [Concomitant]

REACTIONS (6)
  - DRUG INEFFECTIVE [None]
  - HYPERGLYCAEMIA [None]
  - MULTI-ORGAN FAILURE [None]
  - RENAL FAILURE [None]
  - SEPTIC SHOCK [None]
  - URINARY TRACT INFECTION [None]
